FAERS Safety Report 12103821 (Version 1)
Quarter: 2016Q1

REPORT INFORMATION
  Report Type: Spontaneous
  Country: US (occurrence: US)
  Receive Date: 20160223
  Receipt Date: 20160223
  Transmission Date: 20160526
  Serious: Yes (Other)
  Sender: FDA-Public Use
  Company Number: US-ROCHE-1714056

PATIENT
  Age: 64 Year
  Sex: Female

DRUGS (7)
  1. LOSARTAN. [Concomitant]
     Active Substance: LOSARTAN
  2. CHOLESTYRAMINE. [Concomitant]
     Active Substance: CHOLESTYRAMINE
  3. GENOTROPIN [Concomitant]
     Active Substance: SOMATROPIN
  4. NUTROPIN AQ [Suspect]
     Active Substance: SOMATROPIN
     Indication: HYPOPITUITARISM
     Dosage: DOSE: 5 MG/ML
     Route: 058
     Dates: start: 20140412, end: 20150608
  5. SPIRONOLACTONE. [Concomitant]
     Active Substance: SPIRONOLACTONE
     Dosage: INDICATION: DIURETIC THERAPY
     Route: 048
  6. COREG [Concomitant]
     Active Substance: CARVEDILOL
     Route: 065
  7. CARVEDILOL. [Concomitant]
     Active Substance: CARVEDILOL
     Route: 048

REACTIONS (5)
  - Intraocular pressure increased [Not Recovered/Not Resolved]
  - Feeling abnormal [Unknown]
  - Intracranial pressure increased [Not Recovered/Not Resolved]
  - Brain oedema [Recovered/Resolved]
  - Fatigue [Unknown]
